FAERS Safety Report 26025017 (Version 2)
Quarter: 2025Q4

REPORT INFORMATION
  Report Type: Spontaneous
  Country: EU (occurrence: EU)
  Receive Date: 20251111
  Receipt Date: 20251121
  Transmission Date: 20260117
  Serious: Yes (Other)
  Sender: ALKEM
  Company Number: None

PATIENT
  Age: 4 Decade
  Sex: Male

DRUGS (16)
  1. IBUPROFEN [Suspect]
     Active Substance: IBUPROFEN
     Indication: Borderline leprosy
     Dosage: 400 MILLIGRAM, BID
     Route: 065
  2. IBUPROFEN [Suspect]
     Active Substance: IBUPROFEN
     Dosage: 600 MILLIGRAM, BID
     Route: 065
  3. APREMILAST [Suspect]
     Active Substance: APREMILAST
     Indication: Leprosy
     Dosage: 30 MILLIGRAM, BID
     Route: 065
  4. MINOCYCLINE [Suspect]
     Active Substance: MINOCYCLINE HYDROCHLORIDE
     Indication: Leprosy
     Dosage: UNK
     Route: 065
  5. CLARITHROMYCIN [Concomitant]
     Active Substance: CLARITHROMYCIN
     Indication: Leprosy
     Dosage: UNK
     Route: 065
  6. CLOFAZIMINE [Concomitant]
     Active Substance: CLOFAZIMINE
     Indication: Borderline leprosy
     Dosage: UNK
     Route: 065
  7. CLOFAZIMINE [Concomitant]
     Active Substance: CLOFAZIMINE
     Dosage: UNK (REVISED REGIMEN)
     Route: 065
  8. PREDNISONE [Concomitant]
     Active Substance: PREDNISONE
     Indication: Acute febrile neutrophilic dermatosis
     Dosage: 1 MILLIGRAM/KILOGRAM, QD
     Route: 048
  9. PREDNISONE [Concomitant]
     Active Substance: PREDNISONE
     Indication: Borderline leprosy
     Dosage: UNK (VARIABLE DOSES RANGING FROM 5 TO 50 MG)
     Route: 048
  10. PREDNISONE [Concomitant]
     Active Substance: PREDNISONE
     Dosage: UNK (REVISED REGIMEN)
     Route: 065
  11. PREDNISONE [Concomitant]
     Active Substance: PREDNISONE
     Dosage: UNK (TAPER BELOW 50 MG/DAY)
     Route: 065
  12. PREDNISONE [Concomitant]
     Active Substance: PREDNISONE
     Dosage: 60 MILLIGRAM, QD
     Route: 065
  13. PREDNISONE [Concomitant]
     Active Substance: PREDNISONE
     Dosage: UNK (GRADUAL TAPERING)
     Route: 065
  14. THALIDOMIDE [Concomitant]
     Active Substance: THALIDOMIDE
     Indication: Borderline leprosy
     Dosage: 300 MILLIGRAM, QD
     Route: 065
  15. THALIDOMIDE [Concomitant]
     Active Substance: THALIDOMIDE
     Dosage: 100 MILLIGRAM, QD
     Route: 065
  16. THALIDOMIDE [Concomitant]
     Active Substance: THALIDOMIDE
     Dosage: UNK (GRADUAL TAPERING)
     Route: 065

REACTIONS (4)
  - Dermatitis bullous [Recovered/Resolved]
  - Peripheral sensory neuropathy [Unknown]
  - Photosensitivity reaction [Unknown]
  - Off label use [Unknown]
